FAERS Safety Report 19007642 (Version 5)
Quarter: 2023Q1

REPORT INFORMATION
  Report Type: Spontaneous
  Country: US (occurrence: US)
  Receive Date: 20210315
  Receipt Date: 20230202
  Transmission Date: 20230417
  Serious: Yes (Other)
  Sender: FDA-Public Use
  Company Number: US-PFIZER INC-2021247580

PATIENT
  Age: 63 Year
  Sex: Female
  Weight: 81.65 kg

DRUGS (5)
  1. PREMARIN [Suspect]
     Active Substance: ESTROGENS, CONJUGATED
     Indication: Artificial menopause
     Dosage: 0.45 MG, DAILY (0.45 MG ONE TABLET DAILY)
     Route: 048
  2. PREMARIN [Suspect]
     Active Substance: ESTROGENS, CONJUGATED
     Dosage: 0.45 MG, 1X/DAY
  3. PREMARIN [Suspect]
     Active Substance: ESTROGENS, CONJUGATED
     Dosage: UNK
  4. CARVEDILOL [Concomitant]
     Active Substance: CARVEDILOL
     Indication: Cardiac failure congestive
     Dosage: 25 MG, 2X/DAY
  5. SPIRONOLACTONE [Concomitant]
     Active Substance: SPIRONOLACTONE
     Indication: Cardiac failure congestive
     Dosage: 25-25 ONE AND ONE HALF TABLET DAILY

REACTIONS (8)
  - COVID-19 [Recovered/Resolved with Sequelae]
  - Weight decreased [Recovering/Resolving]
  - Dyspnoea [Unknown]
  - Homicidal ideation [Unknown]
  - Visual impairment [Unknown]
  - Visual acuity reduced [Unknown]
  - Asthenia [Unknown]
  - Intentional product misuse [Unknown]
